FAERS Safety Report 8546495-3 (Version None)
Quarter: 2012Q3

REPORT INFORMATION
  Report Type: 
  Country: None (occurrence: None)
  Receive Date: 20120727
  Receipt Date: 20120713
  Transmission Date: 20120928
  Serious: Yes (Congenital Anomaly)
  Sender: FDA-Public Use
  Company Number: DE-WATSON-2012-12446

PATIENT
  Sex: Male
  Weight: 4.045 kg

DRUGS (2)
  1. FOLIC ACID [Concomitant]
     Indication: PROPHYLAXIS OF NEURAL TUBE DEFECT
     Dosage: 0.4 [MG/D ]
     Route: 064
  2. RISPERIDONE [Suspect]
     Indication: BIPOLAR I DISORDER
     Dosage: 2 [MG/D ] SINCE 2004
     Route: 064
     Dates: start: 20110621, end: 20120402

REACTIONS (1)
  - HAEMANGIOMA [None]
